FAERS Safety Report 18953134 (Version 1)
Quarter: 2021Q1

REPORT INFORMATION
  Report Type: Spontaneous
  Country: US (occurrence: US)
  Receive Date: 20210227
  Receipt Date: 20210227
  Transmission Date: 20210420
  Serious: No
  Sender: FDA-Public Use
  Company Number: None

PATIENT
  Age: 55 Year
  Sex: Female

DRUGS (1)
  1. HUMIRA [Suspect]
     Active Substance: ADALIMUMAB
     Indication: RHEUMATOID ARTHRITIS
     Dosage: ?          OTHER FREQUENCY:Q2 WEEKS ;?
     Route: 058
     Dates: start: 20210106

REACTIONS (4)
  - Therapy interrupted [None]
  - Urinary tract infection [None]
  - Sinusitis [None]
  - Ear infection [None]

NARRATIVE: CASE EVENT DATE: 20210201
